FAERS Safety Report 5363117-3 (Version None)
Quarter: 2007Q2

REPORT INFORMATION
  Report Type: 
  Country: None (occurrence: None)
  Receive Date: 20070615
  Receipt Date: 20070525
  Transmission Date: 20071010
  Serious: Yes (Other)
  Sender: FDA-Public Use
  Company Number: BSTA2007-0036

PATIENT
  Age: 67 Year
  Sex: Male

DRUGS (2)
  1. STALEVO 100 [Suspect]
     Indication: PARKINSON'S DISEASE
     Dosage: ORAL
     Route: 048
     Dates: start: 20061220, end: 20070302
  2. CLOZAPINE [Concomitant]

REACTIONS (6)
  - AGITATION [None]
  - ANXIETY [None]
  - CONFABULATION [None]
  - DELIRIUM [None]
  - HYPOMANIA [None]
  - SPEECH DISORDER [None]
